FAERS Safety Report 5309723-3 (Version None)
Quarter: 2007Q2

REPORT INFORMATION
  Report Type: 
  Country: None (occurrence: None)
  Receive Date: 20070427
  Receipt Date: 20061130
  Transmission Date: 20071010
  Serious: No
  Sender: FDA-Public Use
  Company Number: US-GLAXOSMITHKLINE-A0629683A

PATIENT
  Sex: Female

DRUGS (2)
  1. ZOFRAN [Suspect]
     Indication: NAUSEA
     Dosage: 4MG SINGLE DOSE
     Route: 042
     Dates: start: 20061127, end: 20061127
  2. NO CONCURRENT MEDICATION [Concomitant]

REACTIONS (3)
  - DYSKINESIA [None]
  - DYSTONIA [None]
  - PHARMACEUTICAL PRODUCT COMPLAINT [None]
